FAERS Safety Report 9361596 (Version 1)
Quarter: 2013Q2

REPORT INFORMATION
  Report Type: Spontaneous
  Country: TH (occurrence: TH)
  Receive Date: 20130621
  Receipt Date: 20130621
  Transmission Date: 20140414
  Serious: Yes (Other)
  Sender: FDA-Public Use
  Company Number: TH-BAYER-2013-073577

PATIENT
  Age: 32 Year
  Sex: Female

DRUGS (2)
  1. INDOMETHACIN [Suspect]
     Indication: TOCOLYSIS
  2. NIFEDIPINE [Suspect]
     Indication: PREMATURE LABOUR

REACTIONS (2)
  - Exposure during pregnancy [None]
  - Caesarean section [None]
